FAERS Safety Report 9553865 (Version 1)
Quarter: 2013Q3

REPORT INFORMATION
  Report Type: Spontaneous
  Country: US (occurrence: None)
  Receive Date: 20130821
  Receipt Date: 20130821
  Transmission Date: 20140515
  Serious: Yes (Other)
  Sender: FDA-Public Use
  Company Number: 1000046956

PATIENT
  Age: 75 Year
  Sex: Female

DRUGS (4)
  1. TUDORZA PRESSAIR (ACLIDINIUM BROMIDE) (400 MICROGRAM, POWDER) [Suspect]
     Indication: CHRONIC OBSTRUCTIVE PULMONARY DISEASE
     Dosage: 800 MCG (400 MCG, 2 IN 1 D, RESPIRATORY (INIHALATION)
     Route: 055
     Dates: start: 20130719
  2. PREDNISONE (PREDNISONE) (PREDNISONE) [Concomitant]
  3. FLUOXETINE (FLUOXETINE) (FLUOXETINE) [Concomitant]
  4. SIMVASTATIN (SIMVASTATIN) SIMVASTATIN) [Concomitant]

REACTIONS (1)
  - Lip injury [None]
